FAERS Safety Report 12433625 (Version 1)
Quarter: 2016Q2

REPORT INFORMATION
  Report Type: Spontaneous
  Country: US (occurrence: US)
  Receive Date: 20160603
  Receipt Date: 20160603
  Transmission Date: 20160815
  Serious: Yes (Life-Threatening, Hospitalization, Other)
  Sender: FDA-Public Use
  Company Number: US-009507513-1606USA000335

PATIENT
  Sex: Female
  Weight: 110.2 kg

DRUGS (3)
  1. NEXPLANON [Suspect]
     Active Substance: ETONOGESTREL
     Indication: CONTRACEPTION
     Dosage: 1 ROD
     Route: 059
     Dates: start: 201511, end: 20160531
  2. ALBUTEROL. [Concomitant]
     Active Substance: ALBUTEROL
  3. HUMULIN NOS [Concomitant]
     Active Substance: INSULIN HUMAN

REACTIONS (3)
  - Blood glucose abnormal [Recovered/Resolved]
  - Unintended pregnancy [Not Recovered/Not Resolved]
  - Pregnancy with implant contraceptive [Not Recovered/Not Resolved]

NARRATIVE: CASE EVENT DATE: 2016
